FAERS Safety Report 9340581 (Version 2)
Quarter: 2013Q2

REPORT INFORMATION
  Report Type: Spontaneous
  Country: CZ (occurrence: CZ)
  Receive Date: 20130610
  Receipt Date: 20130618
  Transmission Date: 20140414
  Serious: Yes (Other)
  Sender: FDA-Public Use
  Company Number: PHHY2013CZ057868

PATIENT
  Age: 45 Year
  Sex: Female

DRUGS (19)
  1. QUETIAPINE [Suspect]
     Indication: BIPOLAR I DISORDER
     Dosage: 50 MG/DAY IN TWO PARTIAL DOSES
     Route: 042
  2. QUETIAPINE [Suspect]
     Dosage: 100 MG/DAY IN THREE PARTIAL DOSES
     Dates: start: 20111119
  3. ONDANSETRAN [Concomitant]
     Route: 042
  4. APREPITANT [Concomitant]
     Route: 048
  5. RANITIDINE [Concomitant]
     Dosage: 50 MG
     Route: 042
  6. BISULEPIN [Concomitant]
     Dosage: 2 MG
     Route: 042
  7. DOXORUBICIN [Concomitant]
     Indication: BREAST CANCER
     Dosage: 60 MG/M2
     Route: 042
     Dates: start: 20111017, end: 20111017
  8. DOXORUBICIN [Concomitant]
     Dosage: 60 MG/M2
     Route: 042
     Dates: start: 20111108, end: 20111108
  9. DOXORUBICIN [Concomitant]
     Dosage: 60 MG/M2
     Route: 042
     Dates: start: 20111130, end: 20111130
  10. DOXORUBICIN [Concomitant]
     Dosage: 60 MG/M2
     Route: 042
     Dates: start: 20111222, end: 20111222
  11. DEXAMETHASONE [Concomitant]
     Indication: BREAST CANCER
     Dosage: 12 MG
     Route: 042
  12. DEXAMETHASONE [Concomitant]
     Dosage: 8 MG
  13. CYCLOPHOSPHAMIDE [Concomitant]
     Indication: BREAST CANCER
     Dosage: 600 MG/M2
     Route: 042
     Dates: start: 20111017, end: 20111017
  14. CYCLOPHOSPHAMIDE [Concomitant]
     Dosage: 600 MG/M2
     Route: 042
     Dates: start: 20111108, end: 20111108
  15. CYCLOPHOSPHAMIDE [Concomitant]
     Dosage: 600 MG/M2
     Route: 042
     Dates: start: 20111130, end: 20111130
  16. CYCLOPHOSPHAMIDE [Concomitant]
     Dosage: 600 MG/M2
     Route: 042
     Dates: start: 20111222, end: 20111222
  17. ZOLPIDEM [Concomitant]
     Dosage: 10 MG AT NIGHT
  18. CLONAZEPAM [Concomitant]
     Dosage: 4 MG/DAY IN TWO PARTIAL DOSES
  19. OLANZAPINE [Concomitant]

REACTIONS (4)
  - Dermatitis allergic [Unknown]
  - Face oedema [Unknown]
  - Erythema [Unknown]
  - Rhinorrhoea [Unknown]
